FAERS Safety Report 5048772-X (Version None)
Quarter: 2006Q3

REPORT INFORMATION
  Report Type: 
  Country: None (occurrence: None)
  Receive Date: 20060706
  Receipt Date: 20060619
  Transmission Date: 20061208
  Serious: Yes (Life-Threatening)
  Sender: FDA-Public Use
  Company Number: 14273

PATIENT
  Age: 73 Year
  Sex: Female
  Weight: 45 kg

DRUGS (4)
  1. METHOTREXATE SODIUM [Suspect]
     Indication: RHEUMATOID ARTHRITIS
     Dosage: 20 MG OTH
     Dates: start: 20000101, end: 20060421
  2. RISEDRONATE [Suspect]
     Indication: OSTEOPOROSIS
     Dosage: 35 MG WEEKLY
     Dates: end: 20060421
  3. CALCICHEW D3 [Concomitant]
  4. ACETAMINOPHEN [Concomitant]

REACTIONS (3)
  - GASTRITIS [None]
  - MOUTH ULCERATION [None]
  - PANCYTOPENIA [None]
